FAERS Safety Report 7999751-1 (Version None)
Quarter: 2011Q4

REPORT INFORMATION
  Report Type: 
  Country: None (occurrence: None)
  Receive Date: 20111221
  Receipt Date: 20081016
  Transmission Date: 20120403
  Serious: Yes (Hospitalization)
  Sender: FDA-Public Use
  Company Number: JP-SANTEN INC.-INC-11-000188

PATIENT
  Age: 44 Year
  Sex: Female

DRUGS (1)
  1. LEVOFLOXACIN [Suspect]
     Indication: CHALAZION
     Route: 047
     Dates: start: 20081015, end: 20081015

REACTIONS (4)
  - ABDOMINAL PAIN [None]
  - HEADACHE [None]
  - DIZZINESS [None]
  - NAUSEA [None]
